FAERS Safety Report 23077749 (Version 1)
Quarter: 2023Q4

REPORT INFORMATION
  Report Type: Report from Study
  Country: US (occurrence: None)
  Receive Date: 20231018
  Receipt Date: 20231018
  Transmission Date: 20240110
  Serious: Yes (Hospitalization, Other)
  Sender: FDA-Public Use
  Company Number: US-ROCHE-3437679

PATIENT
  Age: 72 Year
  Sex: Male
  Weight: 96.9 kg

DRUGS (3)
  1. RITUXIMAB [Suspect]
     Active Substance: RITUXIMAB
     Indication: Mantle cell lymphoma
     Dosage: WEEKLY DURING CYCLE 1, AND EVERY OTHER CYCLE STARTING WITH CYCLE 4
     Route: 041
  2. ACALABRUTINIB [Suspect]
     Active Substance: ACALABRUTINIB
     Indication: Mantle cell lymphoma
     Route: 048
  3. LENALIDOMIDE [Suspect]
     Active Substance: LENALIDOMIDE
     Indication: Mantle cell lymphoma
     Dosage: 15 MG FOR CYCLE 1, THEN ESCALATED AS TOLERATED TO 20 MG, QD, DAYS 1-21 OUT OF 28 DAY CYCLES
     Route: 065

REACTIONS (7)
  - Herpes zoster [Unknown]
  - Pneumonia [Unknown]
  - Hypotension [Unknown]
  - Asthenia [Unknown]
  - Dyspnoea [Unknown]
  - COVID-19 [Unknown]
  - Pyrexia [Unknown]

NARRATIVE: CASE EVENT DATE: 20200627
